FAERS Safety Report 16148347 (Version 1)
Quarter: 2019Q2

REPORT INFORMATION
  Report Type: Spontaneous
  Country: CZ (occurrence: CZ)
  Receive Date: 20190402
  Receipt Date: 20190402
  Transmission Date: 20190711
  Serious: Yes (Hospitalization)
  Sender: FDA-Public Use
  Company Number: CZ-ACELLA PHARMACEUTICALS, LLC-2065124

PATIENT
  Age: 11 Year
  Sex: Female

DRUGS (3)
  1. BROMPHENIRAMINE MAL, PSEUDOEPHEDRINE HCL, AND DEXTROMETHORPHAN HBR (AN [Suspect]
     Active Substance: DEXBROMPHENIRAMINE MALEATE\DEXTROMETHORPHAN HYDROBROMIDE\PSEUDOEPHEDRINE HYDROCHLORIDE
     Indication: OVERDOSE
  2. PARACETAMOL [Suspect]
     Active Substance: ACETAMINOPHEN
  3. PHENYLEPHRINE [Suspect]
     Active Substance: PHENYLEPHRINE\PHENYLEPHRINE HYDROCHLORIDE

REACTIONS (10)
  - Abdominal pain [Unknown]
  - Vomiting [Unknown]
  - Mydriasis [Unknown]
  - Drug abuse [Unknown]
  - Erythema [Unknown]
  - Syncope [Recovered/Resolved]
  - Muscle contractions involuntary [Unknown]
  - Somnolence [Unknown]
  - Pupils unequal [Unknown]
  - Abnormal behaviour [Unknown]
